FAERS Safety Report 7902053-2 (Version None)
Quarter: 2011Q4

REPORT INFORMATION
  Report Type: 
  Country: None (occurrence: None)
  Receive Date: 20111108
  Receipt Date: 20111031
  Transmission Date: 20120403
  Serious: Yes (Hospitalization)
  Sender: FDA-Public Use
  Company Number: JP-GLAXOSMITHKLINE-B0751676A

PATIENT
  Sex: Female
  Weight: 8.5 kg

DRUGS (4)
  1. ALPINY [Concomitant]
     Indication: PYREXIA
     Route: 054
     Dates: start: 20110920, end: 20110922
  2. FLOMOX [Suspect]
     Indication: IMPETIGO
     Route: 048
     Dates: start: 20110920, end: 20110922
  3. ZOVIRAX [Suspect]
     Indication: GINGIVITIS
     Dosage: .4G PER DAY
     Route: 048
     Dates: start: 20110924, end: 20110926
  4. CEFAZOLIN SODIUM [Concomitant]
     Dosage: .6G PER DAY
     Route: 048
     Dates: start: 20110924, end: 20110926

REACTIONS (8)
  - RASH [None]
  - PYREXIA [None]
  - C-REACTIVE PROTEIN INCREASED [None]
  - RASH GENERALISED [None]
  - SWELLING FACE [None]
  - ERYTHEMA [None]
  - NEUTROPHIL COUNT DECREASED [None]
  - AGRANULOCYTOSIS [None]
